FAERS Safety Report 9301550 (Version 1)
Quarter: 2012Q4

REPORT INFORMATION
  Report Type: Spontaneous
  Country: US (occurrence: None)
  Receive Date: 20121119
  Receipt Date: 20121119
  Transmission Date: 20130627
  Serious: No
  Sender: FDA-Public Use
  Company Number: 2012-00155

PATIENT
  Age: 65 Year
  Sex: Male

DRUGS (4)
  1. ZICAM COLD REMEDY ORAL MIST [Suspect]
     Indication: COLD
     Dosage: every 3 hours
     Dates: start: 20120918
  2. ZYRTEC [Concomitant]
  3. SIMVASTATIN [Concomitant]
  4. UNKNOWN THROAT LOZENGE [Concomitant]

REACTIONS (2)
  - Anosmia [None]
  - Ageusia [None]
